FAERS Safety Report 12484061 (Version 1)
Quarter: 2016Q2

REPORT INFORMATION
  Report Type: Spontaneous
  Country: CA (occurrence: CA)
  Receive Date: 20160621
  Receipt Date: 20160621
  Transmission Date: 20160815
  Serious: Yes (Other)
  Sender: FDA-Public Use
  Company Number: CA-ASTRAZENECA-2016SE64988

PATIENT
  Age: 41 Year
  Sex: Female
  Weight: 59 kg

DRUGS (2)
  1. PUMICORT NEBUAMP [Suspect]
     Active Substance: BUDESONIDE
     Indication: SINUSITIS
     Route: 055
  2. BIAXIN [Concomitant]
     Active Substance: CLARITHROMYCIN

REACTIONS (9)
  - Anosmia [Unknown]
  - Fatigue [Unknown]
  - Rhinorrhoea [Unknown]
  - Product contamination physical [Unknown]
  - Cough [Unknown]
  - Drug ineffective [Unknown]
  - Product physical issue [Unknown]
  - Sinus congestion [Unknown]
  - Sneezing [Unknown]
